FAERS Safety Report 4967598-6 (Version None)
Quarter: 2006Q2

REPORT INFORMATION
  Report Type: 
  Country: None (occurrence: None)
  Receive Date: 20060407
  Receipt Date: 20060407
  Transmission Date: 20061013
  Serious: Yes (Disabling)
  Sender: FDA-Public Use
  Company Number: None

PATIENT
  Age: 15 Year
  Sex: Male
  Weight: 65 kg

DRUGS (2)
  1. WARFARIN [Suspect]
     Indication: AORTIC VALVE REPLACEMENT
     Dosage: 44 MG   PER WEEK  PO
     Route: 048
  2. ISOTRETINOIN [Suspect]
     Indication: ACNE

REACTIONS (2)
  - ACNE [None]
  - INTERNATIONAL NORMALISED RATIO INCREASED [None]
